FAERS Safety Report 8103021-0 (Version None)
Quarter: 2012Q1

REPORT INFORMATION
  Report Type: 
  Country: None (occurrence: None)
  Receive Date: 20120201
  Receipt Date: 20120201
  Transmission Date: 20120608
  Serious: Yes (Disabling, Other)
  Sender: FDA-Public Use
  Company Number: None

PATIENT
  Age: 55 Year
  Sex: Female
  Weight: 55 kg

DRUGS (1)
  1. ENALAPRIL MALEATE [Suspect]
     Indication: MONONEUROPATHY MULTIPLEX
     Dosage: 5 MG
     Route: 048

REACTIONS (1)
  - MONONEUROPATHY MULTIPLEX [None]
